FAERS Safety Report 5652308-X (Version None)
Quarter: 2008Q1

REPORT INFORMATION
  Report Type: 
  Country: None (occurrence: None)
  Receive Date: 20080131
  Receipt Date: 20071030
  Transmission Date: 20080703
  Serious: No
  Sender: FDA-Public Use
  Company Number: US200711000598

PATIENT
  Age: 60 Year
  Sex: Male

DRUGS (9)
  1. BYETTA [Suspect]
     Dosage: 5 UG, 2/D, SUBCUTANEOUS
     Route: 058
     Dates: start: 20070801
  2. GLIMEPIRIDE [Concomitant]
  3. LISINOPRIL [Concomitant]
  4. FOLIC ACID [Concomitant]
  5. COD LIVER OIL FORTIFIED TAB [Concomitant]
  6. MSM (METHYLSULFONYLMETHANE) [Concomitant]
  7. BIOTIN [Concomitant]
  8. B12 (CYANOCOBALAMIN-TANNIN COMPLEX) [Concomitant]
  9. L-CARNITINE (CARNITINE) [Concomitant]

REACTIONS (3)
  - ANXIETY [None]
  - ERECTILE DYSFUNCTION [None]
  - FEELING JITTERY [None]
